FAERS Safety Report 16292063 (Version 1)
Quarter: 2019Q2

REPORT INFORMATION
  Report Type: Report from Study
  Country: US (occurrence: US)
  Receive Date: 20190509
  Receipt Date: 20190509
  Transmission Date: 20190711
  Serious: Yes (Hospitalization)
  Sender: FDA-Public Use
  Company Number: US-ALKERMES INC.-ALK-2018-002334

PATIENT
  Age: 54 Year
  Sex: Male

DRUGS (14)
  1. VIVITROL [Suspect]
     Active Substance: NALTREXONE
     Indication: SUBSTANCE USE DISORDER
     Dosage: UNK UNK, Q3WK
     Route: 030
     Dates: start: 20180208, end: 20180412
  2. BLINDED BUPROPION [Suspect]
     Active Substance: BUPROPION
     Dosage: UNK MG, QD
     Route: 048
     Dates: start: 20180208
  3. IBUPROFEN. [Concomitant]
     Active Substance: IBUPROFEN
     Indication: PRODUCT USED FOR UNKNOWN INDICATION
     Dosage: UNK
  4. TRAZODONE [Concomitant]
     Active Substance: TRAZODONE HYDROCHLORIDE
     Indication: PRODUCT USED FOR UNKNOWN INDICATION
     Dosage: UNK
  5. TAMSULOSIN [Concomitant]
     Active Substance: TAMSULOSIN
     Indication: PRODUCT USED FOR UNKNOWN INDICATION
     Dosage: UNK
  6. KETOCONAZOLE. [Concomitant]
     Active Substance: KETOCONAZOLE
     Indication: PRODUCT USED FOR UNKNOWN INDICATION
     Dosage: UNK
  7. BLINDED BUPROPION [Suspect]
     Active Substance: BUPROPION
     Indication: SUBSTANCE USE DISORDER
     Dosage: UNK UNK, Q3WK
     Route: 030
     Dates: start: 20180208, end: 20180412
  8. BLINDED PLACEBO [Suspect]
     Active Substance: INVESTIGATIONAL PRODUCT
     Dosage: UNK MG, QD
     Route: 048
     Dates: start: 20180208
  9. CLONAZEPAM. [Concomitant]
     Active Substance: CLONAZEPAM
     Indication: PRODUCT USED FOR UNKNOWN INDICATION
     Dosage: UNK
  10. VITAMIN D2 [Concomitant]
     Active Substance: ERGOCALCIFEROL
     Indication: PRODUCT USED FOR UNKNOWN INDICATION
     Dosage: UNK
  11. BACLOFEN. [Concomitant]
     Active Substance: BACLOFEN
     Indication: PRODUCT USED FOR UNKNOWN INDICATION
     Dosage: UNK
  12. BLINDED PLACEBO [Suspect]
     Active Substance: INVESTIGATIONAL PRODUCT
     Indication: SUBSTANCE USE DISORDER
     Dosage: UNK UNK, Q3WK
     Route: 030
     Dates: start: 20180208, end: 20180412
  13. TRIUMEQ [Concomitant]
     Active Substance: ABACAVIR SULFATE\DOLUTEGRAVIR SODIUM\LAMIVUDINE
     Indication: PRODUCT USED FOR UNKNOWN INDICATION
     Dosage: UNK
  14. VIVITROL [Suspect]
     Active Substance: NALTREXONE
     Dosage: UNK MG, QD
     Route: 048
     Dates: start: 20180208

REACTIONS (9)
  - Cold sweat [Recovered/Resolved]
  - Fatigue [Recovered/Resolved]
  - Hypotension [Recovered/Resolved]
  - Off label use [Not Recovered/Not Resolved]
  - Tachycardia [Recovered/Resolved]
  - Micturition disorder [Recovered/Resolved]
  - Malaise [Recovered/Resolved]
  - Urosepsis [Recovered/Resolved]
  - Somnolence [Recovered/Resolved]

NARRATIVE: CASE EVENT DATE: 20180419
